FAERS Safety Report 10754221 (Version 1)
Quarter: 2015Q1

REPORT INFORMATION
  Report Type: Spontaneous
  Country: KR (occurrence: KR)
  Receive Date: 20150202
  Receipt Date: 20150202
  Transmission Date: 20150721
  Serious: Yes (Hospitalization)
  Sender: FDA-Public Use
  Company Number: KR-ACCORD-028340

PATIENT
  Age: 62 Year
  Sex: Male

DRUGS (3)
  1. IRINOTECAN [Interacting]
     Active Substance: IRINOTECAN
     Indication: COLORECTAL CANCER
     Dosage: 180 MG/M2 FOR 2 HOURS ON DAY 1.
  2. FLUOROURACIL. [Suspect]
     Active Substance: FLUOROURACIL
     Indication: COLORECTAL CANCER
     Dosage: 400 MG/M2 AS AN IV BOLUS INJECTION AND 600 MG/M2 IN CONTINUOUS INFUSION FOR 22 HOURS ON DAYS 1 AND 2
     Route: 040
  3. FOLINIC ACID [Suspect]
     Active Substance: LEUCOVORIN
     Indication: COLORECTAL CANCER
     Dosage: 200 MG/M2 FOR 2 HOURS ADDED ON DAYS 1 AND 2.

REACTIONS (2)
  - Organising pneumonia [Recovered/Resolved]
  - Drug interaction [Unknown]
